FAERS Safety Report 9407268 (Version 2)
Quarter: 2013Q3

REPORT INFORMATION
  Report Type: Report from Study
  Country: US (occurrence: US)
  Receive Date: 20130718
  Receipt Date: 20130801
  Transmission Date: 20140515
  Serious: Yes (Other)
  Sender: FDA-Public Use
  Company Number: US-SANOFI-AVENTIS-2013SA060431

PATIENT
  Age: 63 Year
  Sex: Female
  Weight: 83 kg

DRUGS (2)
  1. AUBAGIO [Suspect]
     Indication: MULTIPLE SCLEROSIS
     Route: 048
     Dates: start: 20130504, end: 20130628
  2. AUBAGIO [Suspect]
     Indication: MULTIPLE SCLEROSIS
     Route: 048
     Dates: start: 20130629, end: 20130726

REACTIONS (9)
  - Cataract [Unknown]
  - Vision blurred [Unknown]
  - Condition aggravated [Unknown]
  - Upper respiratory tract infection [Unknown]
  - Multiple sclerosis relapse [Unknown]
  - Blood sodium decreased [Not Recovered/Not Resolved]
  - Hypertension [Unknown]
  - Wrong technique in drug usage process [Unknown]
  - Drug ineffective [Unknown]
